FAERS Safety Report 18086663 (Version 1)
Quarter: 2020Q3

REPORT INFORMATION
  Report Type: Spontaneous
  Country: PL (occurrence: PL)
  Receive Date: 20200729
  Receipt Date: 20200729
  Transmission Date: 20201103
  Serious: Yes (Other)
  Sender: FDA-Public Use
  Company Number: PL-TEVA-2020-PL-1806247

PATIENT
  Age: 47 Year
  Sex: Male
  Weight: 72 kg

DRUGS (3)
  1. OXALIPLATIN. [Suspect]
     Active Substance: OXALIPLATIN
     Indication: RECTAL CANCER
     Dosage: DOSE: 162.35; DOSE UNIT: NOT SPECIFIED
     Route: 042
     Dates: start: 20160405, end: 20171122
  2. CALCIUM FOLINATE [Suspect]
     Active Substance: LEUCOVORIN CALCIUM
     Indication: RECTAL CANCER
     Dosage: DOSE: 382; DOSE UNITS: NOT SPECIFIED
     Route: 042
     Dates: start: 20160405, end: 20171122
  3. FLUOROURACIL. [Suspect]
     Active Substance: FLUOROURACIL
     Indication: RECTAL CANCER
     Dosage: DOSE: 764; DOSE UNIT: NOT SPECIFIED
     Route: 040
     Dates: start: 20160405, end: 20171122

REACTIONS (1)
  - Neutropenia [Unknown]

NARRATIVE: CASE EVENT DATE: 20171205
